FAERS Safety Report 5064842-4 (Version None)
Quarter: 2006Q3

REPORT INFORMATION
  Report Type: 
  Country: None (occurrence: None)
  Receive Date: 20060726
  Receipt Date: 20060712
  Transmission Date: 20061208
  Serious: Yes (Other)
  Sender: FDA-Public Use
  Company Number: 2006088546

PATIENT
  Sex: Female
  Weight: 82.5547 kg

DRUGS (9)
  1. CELEBREX [Suspect]
     Indication: DRUG USE FOR UNKNOWN INDICATION
  2. AROMASIN [Suspect]
     Indication: METASTASES TO LIVER
     Dosage: 25 MG (25 MG, 1 IN 1 D)
     Dates: start: 20060210
  3. ATENOLOL [Concomitant]
  4. NEURONTIN [Concomitant]
  5. XANAX [Concomitant]
  6. VITAMINS (VITAMINS) [Concomitant]
  7. FLAXSEED OIL (LINSEED OIL) [Concomitant]
  8. VICODIN [Concomitant]
  9. ZOLOFT [Concomitant]

REACTIONS (2)
  - ABDOMINAL PAIN [None]
  - PULMONARY HYPERTENSION [None]
